FAERS Safety Report 8564798-3 (Version None)
Quarter: 2012Q3

REPORT INFORMATION
  Report Type: 
  Country: None (occurrence: None)
  Receive Date: 20120803
  Receipt Date: 20120801
  Transmission Date: 20120928
  Serious: Yes (Other)
  Sender: FDA-Public Use
  Company Number: US-TEVA-351469USA

PATIENT
  Sex: Female

DRUGS (3)
  1. DIAZEPAM [Suspect]
     Indication: NERVOUSNESS
     Route: 048
  2. PERCOCET [Concomitant]
  3. ASTETRO [Concomitant]

REACTIONS (1)
  - PARALYSIS [None]
